FAERS Safety Report 6727818-4 (Version None)
Quarter: 2010Q2

REPORT INFORMATION
  Report Type: 
  Country: None (occurrence: None)
  Receive Date: 20100517
  Receipt Date: 20100506
  Transmission Date: 20101027
  Serious: Yes (Hospitalization)
  Sender: FDA-Public Use
  Company Number: SE-JNJFOC-20100505311

PATIENT
  Age: 61 Year
  Sex: Female

DRUGS (4)
  1. REMICADE [Suspect]
     Indication: PSORIATIC ARTHROPATHY
     Route: 042
  2. METOJECT [Suspect]
     Indication: PSORIATIC ARTHROPATHY
  3. METOJECT [Suspect]
  4. BETAPRED [Suspect]
     Indication: PSORIATIC ARTHROPATHY
     Route: 048

REACTIONS (2)
  - ABSCESS [None]
  - DIVERTICULAR PERFORATION [None]
